FAERS Safety Report 9099270 (Version 2)
Quarter: 2014Q1

REPORT INFORMATION
  Report Type: Report from Study
  Country: FR (occurrence: FR)
  Receive Date: 20130213
  Receipt Date: 20140203
  Transmission Date: 20141002
  Serious: Yes (Hospitalization)
  Sender: FDA-Public Use
  Company Number: FR-SHIRE-ALL1-2013-00712

PATIENT
  Age: 7 Year
  Sex: Male

DRUGS (3)
  1. IDURSULFASE [Suspect]
     Indication: MUCOPOLYSACCHARIDOSIS II
     Dosage: 18 MG, UNKNOWN
     Route: 041
     Dates: start: 20100909
  2. IDURSULFASE [Suspect]
     Dosage: 12 MG, 1X/WEEK
     Route: 041
     Dates: start: 20070410
  3. ATARAX                             /00058401/ [Concomitant]
     Indication: PREMEDICATION
     Dosage: 6 MG, 1X/WEEK
     Route: 048
     Dates: start: 20070410

REACTIONS (1)
  - Ear tube insertion [Recovered/Resolved]
